FAERS Safety Report 18750188 (Version 1)
Quarter: 2021Q1

REPORT INFORMATION
  Report Type: Spontaneous
  Country: CN (occurrence: CN)
  Receive Date: 20210118
  Receipt Date: 20210118
  Transmission Date: 20210419
  Serious: Yes (Other)
  Sender: FDA-Public Use
  Company Number: CN-JNJFOC-20210109760

PATIENT

DRUGS (11)
  1. OSELTAMIVIR PHOSPHATE. [Suspect]
     Active Substance: OSELTAMIVIR PHOSPHATE
     Indication: PRODUCT USED FOR UNKNOWN INDICATION
     Route: 065
  2. AZITHROMYCIN ANHYDROUS. [Suspect]
     Active Substance: AZITHROMYCIN ANHYDROUS
     Indication: PRODUCT USED FOR UNKNOWN INDICATION
     Route: 065
  3. CEFUROXIME. [Suspect]
     Active Substance: CEFUROXIME
     Indication: PRODUCT USED FOR UNKNOWN INDICATION
     Route: 065
  4. AMOXICILLIN. [Suspect]
     Active Substance: AMOXICILLIN
     Indication: PRODUCT USED FOR UNKNOWN INDICATION
     Route: 065
  5. PARACETAMOL [Suspect]
     Active Substance: ACETAMINOPHEN
     Indication: PRODUCT USED FOR UNKNOWN INDICATION
     Route: 065
  6. PARACETAMOL [Suspect]
     Active Substance: ACETAMINOPHEN
     Indication: PRODUCT USED FOR UNKNOWN INDICATION
     Route: 065
  7. PARACETAMOL [Suspect]
     Active Substance: ACETAMINOPHEN
     Indication: PRODUCT USED FOR UNKNOWN INDICATION
     Route: 065
  8. PARACETAMOL [Suspect]
     Active Substance: ACETAMINOPHEN
     Indication: PRODUCT USED FOR UNKNOWN INDICATION
     Route: 065
  9. PARACETAMOL [Suspect]
     Active Substance: ACETAMINOPHEN
     Route: 065
  10. CEFACLOR. [Suspect]
     Active Substance: CEFACLOR
     Indication: PRODUCT USED FOR UNKNOWN INDICATION
     Route: 065
  11. METRONIDAZOLE. [Suspect]
     Active Substance: METRONIDAZOLE
     Indication: PRODUCT USED FOR UNKNOWN INDICATION
     Route: 065

REACTIONS (35)
  - Diarrhoea [Unknown]
  - Decreased appetite [Unknown]
  - Hyperaesthesia [Unknown]
  - Pruritus [Unknown]
  - Pyrexia [Unknown]
  - Dry mouth [Unknown]
  - Seizure [Unknown]
  - Anaphylactoid reaction [Unknown]
  - Nausea [Unknown]
  - Dizziness [Unknown]
  - Body temperature decreased [Unknown]
  - Platelet count decreased [Unknown]
  - White blood cell count decreased [Unknown]
  - Laryngeal pain [Unknown]
  - Hypersensitivity [Unknown]
  - Renal impairment [Unknown]
  - Chest discomfort [Unknown]
  - Asthenia [Unknown]
  - Rash maculo-papular [Unknown]
  - Hepatic function abnormal [Unknown]
  - Dyspnoea [Unknown]
  - Vomiting [Unknown]
  - Face oedema [Unknown]
  - Abdominal pain [Unknown]
  - Hepatic failure [Unknown]
  - Stevens-Johnson syndrome [Unknown]
  - Abdominal distension [Unknown]
  - Abdominal discomfort [Unknown]
  - Headache [Unknown]
  - Hypoaesthesia oral [Unknown]
  - Flushing [Unknown]
  - Influenza like illness [Unknown]
  - Eyelid oedema [Unknown]
  - Rash [Unknown]
  - Urticaria [Unknown]
